FAERS Safety Report 15706007 (Version 1)
Quarter: 2018Q4

REPORT INFORMATION
  Report Type: Spontaneous
  Country: US (occurrence: US)
  Receive Date: 20181210
  Receipt Date: 20181210
  Transmission Date: 20190205
  Serious: Yes (Other)
  Sender: FDA-Public Use
  Company Number: US-BIOGEN-2016BI00259588

PATIENT
  Sex: Female

DRUGS (5)
  1. AVONEX [Suspect]
     Active Substance: INTERFERON BETA-1A
     Indication: MULTIPLE SCLEROSIS
     Route: 030
     Dates: start: 20130319
  2. OXYCODONE/ACETAMINOPHEN [Concomitant]
     Active Substance: ACETAMINOPHEN\OXYCODONE HYDROCHLORIDE
     Indication: PRODUCT USED FOR UNKNOWN INDICATION
     Route: 065
  3. AVONEX [Suspect]
     Active Substance: INTERFERON BETA-1A
     Route: 065
     Dates: start: 20040708
  4. IBUPROFEN. [Concomitant]
     Active Substance: IBUPROFEN
     Indication: PRODUCT USED FOR UNKNOWN INDICATION
     Route: 065
  5. DIAZEPAM. [Concomitant]
     Active Substance: DIAZEPAM
     Indication: PRODUCT USED FOR UNKNOWN INDICATION
     Route: 065

REACTIONS (17)
  - Blindness unilateral [Unknown]
  - Eye movement disorder [Unknown]
  - Fall [Recovered/Resolved]
  - Mental disorder [Unknown]
  - Band sensation [Unknown]
  - Pain [Unknown]
  - Balance disorder [Unknown]
  - Gait disturbance [Unknown]
  - Nervousness [Unknown]
  - General physical health deterioration [Unknown]
  - Crying [Unknown]
  - Multiple sclerosis [Unknown]
  - Muscle spasms [Unknown]
  - Product dose omission [Unknown]
  - Agoraphobia [Unknown]
  - Aphasia [Unknown]
  - Malaise [Unknown]
